FAERS Safety Report 6166061-7 (Version None)
Quarter: 2009Q2

REPORT INFORMATION
  Report Type: 
  Country: None (occurrence: None)
  Receive Date: 20090424
  Receipt Date: 20090421
  Transmission Date: 20091009
  Serious: Yes (Death)
  Sender: FDA-Public Use
  Company Number: JP-JNJFOC-20090405599

PATIENT
  Age: 69 Year

DRUGS (3)
  1. DUROTEP [Suspect]
     Route: 062
  2. DUROTEP [Suspect]
     Route: 062
  3. DUROTEP [Suspect]
     Indication: DRUG USE FOR UNKNOWN INDICATION
     Route: 062

REACTIONS (4)
  - DEATH [None]
  - DRUG INEFFECTIVE [None]
  - NAUSEA [None]
  - VOMITING [None]
